FAERS Safety Report 6948717-9 (Version None)
Quarter: 2010Q3

REPORT INFORMATION
  Report Type: 
  Country: None (occurrence: None)
  Receive Date: 20100828
  Receipt Date: 20091207
  Transmission Date: 20110219
  Serious: No
  Sender: FDA-Public Use
  Company Number: US-ABBOTT-09P-163-0608149-00

PATIENT
  Sex: Male
  Weight: 94.886 kg

DRUGS (12)
  1. NIASPAN [Suspect]
     Indication: BLOOD TRIGLYCERIDES INCREASED
     Dosage: NIGHTLY
  2. NIASPAN [Suspect]
     Indication: LOW DENSITY LIPOPROTEIN INCREASED
  3. ASPIRIN [Concomitant]
     Indication: PRODUCT USED FOR UNKNOWN INDICATION
     Route: 048
  4. TRICOR [Concomitant]
     Indication: PRODUCT USED FOR UNKNOWN INDICATION
     Route: 048
  5. LIPITOR [Concomitant]
     Indication: PRODUCT USED FOR UNKNOWN INDICATION
     Route: 048
  6. LIPITOR [Concomitant]
     Route: 048
  7. METOPROLOL [Concomitant]
     Indication: PRODUCT USED FOR UNKNOWN INDICATION
     Route: 048
  8. HYDROCHLOROTHIAZIDE [Concomitant]
     Indication: PRODUCT USED FOR UNKNOWN INDICATION
     Route: 048
  9. EXFORGE [Concomitant]
     Indication: PRODUCT USED FOR UNKNOWN INDICATION
     Dosage: 5/160MG
     Route: 048
  10. ALLOPURINOL [Concomitant]
     Indication: PRODUCT USED FOR UNKNOWN INDICATION
     Route: 048
  11. COLCHICINE [Concomitant]
     Indication: PRODUCT USED FOR UNKNOWN INDICATION
     Route: 048
  12. AMOXICILLIN [Concomitant]
     Indication: PROPHYLAXIS
     Route: 048

REACTIONS (3)
  - FEELING HOT [None]
  - FLUSHING [None]
  - PRURITUS [None]
